FAERS Safety Report 8375217-4 (Version None)
Quarter: 2012Q2

REPORT INFORMATION
  Report Type: 
  Country: None (occurrence: None)
  Receive Date: 20120522
  Receipt Date: 20120510
  Transmission Date: 20120825
  Serious: Yes (Other)
  Sender: FDA-Public Use
  Company Number: US-BRISTOL-MYERS SQUIBB COMPANY-16589665

PATIENT
  Age: 81 Year
  Sex: Male
  Weight: 52 kg

DRUGS (10)
  1. MEGACE [Suspect]
     Indication: WEIGHT DECREASED
     Dates: start: 20120427, end: 20120430
  2. NAMENDA [Suspect]
     Indication: DEMENTIA
     Dosage: FORM: TABS
     Route: 048
     Dates: start: 20120427, end: 20120430
  3. FLOMAX [Concomitant]
     Indication: BENIGN PROSTATIC HYPERPLASIA
  4. SPIRIVA [Concomitant]
     Indication: ASTHMA
  5. MEGACE [Suspect]
     Indication: DECREASED APPETITE
     Dates: start: 20120427, end: 20120430
  6. NEXIUM [Concomitant]
     Indication: GASTROINTESTINAL HAEMORRHAGE
  7. EXELON [Concomitant]
     Indication: DEMENTIA
     Route: 023
     Dates: start: 20070101
  8. ASMANEX TWISTHALER [Concomitant]
     Indication: ASTHMA
  9. MULTI-VITAMINS [Concomitant]
  10. GLUCOSAMINE [Concomitant]

REACTIONS (2)
  - BALANCE DISORDER [None]
  - CONFUSIONAL STATE [None]
